FAERS Safety Report 8420556-1 (Version None)
Quarter: 2012Q2

REPORT INFORMATION
  Report Type: 
  Country: None (occurrence: None)
  Receive Date: 20120608
  Receipt Date: 20120530
  Transmission Date: 20120825
  Serious: No
  Sender: FDA-Public Use
  Company Number: US-BIOGENIDEC-2012BI006193

PATIENT
  Age: 39 Year
  Sex: Female

DRUGS (4)
  1. TYSABRI [Suspect]
     Indication: MULTIPLE SCLEROSIS
     Route: 042
     Dates: start: 20120116
  2. MEDICATIONS (NOS) [Concomitant]
     Indication: DEPRESSION
  3. PAIN MEDICATION (NOS) [Concomitant]
     Indication: PAIN
     Dates: end: 20110901
  4. MEDICATIONS (NOS) [Concomitant]
     Indication: ANXIETY

REACTIONS (4)
  - NAUSEA [None]
  - PAIN [None]
  - LOSS OF CONSCIOUSNESS [None]
  - DEPRESSED MOOD [None]
